FAERS Safety Report 22377990 (Version 1)
Quarter: 2023Q2

REPORT INFORMATION
  Report Type: Spontaneous
  Country: CA (occurrence: CA)
  Receive Date: 20230529
  Receipt Date: 20230529
  Transmission Date: 20230721
  Serious: Yes (Hospitalization)
  Sender: FDA-Public Use
  Company Number: CA-TEVA-2023-CA-2890075

PATIENT
  Age: 35 Year
  Sex: Female

DRUGS (9)
  1. METHOTREXATE [Suspect]
     Active Substance: METHOTREXATE
     Indication: Product used for unknown indication
     Route: 058
  2. METHOTREXATE [Suspect]
     Active Substance: METHOTREXATE
     Route: 058
  3. MYCOPHENOLATE MOFETIL [Suspect]
     Active Substance: MYCOPHENOLATE MOFETIL
     Indication: Product used for unknown indication
     Dosage: 2 GRAM DAILY;
     Route: 048
  4. METHOTREXATE [Suspect]
     Active Substance: METHOTREXATE
     Indication: Product used for unknown indication
     Route: 048
  5. METHOTREXATE [Suspect]
     Active Substance: METHOTREXATE
     Route: 048
  6. RITUXIMAB [Suspect]
     Active Substance: RITUXIMAB
     Indication: Necrotising myositis
     Route: 042
  7. RITUXIMAB [Suspect]
     Active Substance: RITUXIMAB
     Route: 042
  8. PREDNISONE [Concomitant]
     Active Substance: PREDNISONE
     Indication: Product used for unknown indication
     Route: 065
  9. PREDNISONE [Concomitant]
     Active Substance: PREDNISONE
     Route: 065

REACTIONS (5)
  - Condition aggravated [Unknown]
  - Gastrointestinal disorder [Unknown]
  - Myocarditis [Unknown]
  - Respiratory muscle weakness [Unknown]
  - Drug ineffective [Unknown]
